FAERS Safety Report 8059345-9 (Version None)
Quarter: 2012Q1

REPORT INFORMATION
  Report Type: 
  Country: None (occurrence: None)
  Receive Date: 20120120
  Receipt Date: 20120120
  Transmission Date: 20120608
  Serious: Yes (Disabling)
  Sender: FDA-Public Use
  Company Number: None

PATIENT
  Sex: Male
  Weight: 134.71 kg

DRUGS (6)
  1. BLOOD PRESSURE PILLS [Concomitant]
  2. CELEBREX [Concomitant]
  3. ACCUPRIL [Concomitant]
  4. GLIPIZIDE [Suspect]
     Indication: DIABETES MELLITUS
     Dosage: 20MG
     Route: 048
  5. BLOOD THINNER [Concomitant]
  6. BETA BLOCKER [Concomitant]

REACTIONS (2)
  - DRUG INEFFECTIVE [None]
  - PRODUCT SUBSTITUTION ISSUE [None]
